FAERS Safety Report 20882444 (Version 2)
Quarter: 2022Q2

REPORT INFORMATION
  Report Type: Spontaneous
  Country: US (occurrence: US)
  Receive Date: 20220527
  Receipt Date: 20220605
  Transmission Date: 20220721
  Serious: Yes (Death, Hospitalization)
  Sender: FDA-Public Use
  Company Number: US-BIOGEN-2022BI01125607

PATIENT
  Age: 32 Year
  Sex: Male

DRUGS (1)
  1. SPINRAZA [Suspect]
     Active Substance: NUSINERSEN
     Indication: Spinal muscular atrophy
     Route: 065
     Dates: start: 20200605

REACTIONS (3)
  - Brain injury [Fatal]
  - Respiratory arrest [Unknown]
  - Pneumonia [Unknown]

NARRATIVE: CASE EVENT DATE: 20220519
